FAERS Safety Report 10076656 (Version 2)
Quarter: 2014Q2

REPORT INFORMATION
  Report Type: Spontaneous
  Country: US (occurrence: US)
  Receive Date: 20140414
  Receipt Date: 20140520
  Transmission Date: 20141212
  Serious: No
  Sender: FDA-Public Use
  Company Number: US-PFIZER INC-2014103864

PATIENT
  Sex: Female

DRUGS (5)
  1. CELEBREX [Suspect]
     Indication: ARTHRITIS
     Dosage: 1 DF, SINGLE (TOOK ONE CAPSULE)
  2. NEXIUM [Concomitant]
     Dosage: UNK
  3. ZANTAC [Concomitant]
     Dosage: UNK
  4. SYNTHROID [Concomitant]
     Indication: HYPOTHYROIDISM
     Dosage: 0.025 MG, 1X/DAY
  5. PREMARIN [Concomitant]
     Dosage: UNK

REACTIONS (2)
  - Plantar fasciitis [Unknown]
  - Abdominal pain upper [Unknown]
